FAERS Safety Report 5689527-2 (Version None)
Quarter: 2008Q1

REPORT INFORMATION
  Report Type: 
  Country: None (occurrence: None)
  Receive Date: 20080331
  Receipt Date: 20080321
  Transmission Date: 20080703
  Serious: Yes (Hospitalization)
  Sender: FDA-Public Use
  Company Number: JP-PFIZER INC-2008026686

PATIENT
  Age: 64 Year
  Sex: Female

DRUGS (4)
  1. SOLU-MEDROL [Suspect]
     Indication: INTERSTITIAL LUNG DISEASE
     Dosage: DAILY DOSE:500MG
     Route: 042
  2. CORTICOSTEROIDS [Concomitant]
  3. PREDNISOLONE [Concomitant]
     Route: 048
  4. TACROLIMUS [Concomitant]
     Route: 048

REACTIONS (2)
  - PNEUMOMEDIASTINUM [None]
  - TREMOR [None]
